APPROVED DRUG PRODUCT: EPLERENONE
Active Ingredient: EPLERENONE
Strength: 50MG
Dosage Form/Route: TABLET;ORAL
Application: A078482 | Product #002 | TE Code: AB
Applicant: CHARTWELL RX SCIENCES LLC
Approved: Jul 30, 2008 | RLD: No | RS: No | Type: RX